FAERS Safety Report 10249786 (Version 1)
Quarter: 2014Q2

REPORT INFORMATION
  Report Type: Spontaneous
  Country: US (occurrence: US)
  Receive Date: 20140620
  Receipt Date: 20140620
  Transmission Date: 20141212
  Serious: Yes (Hospitalization)
  Sender: FDA-Public Use
  Company Number: US-CELGENEUS-163-CCAZA-14062176

PATIENT
  Age: 55 Year
  Sex: Male
  Weight: 81.54 kg

DRUGS (1)
  1. AZACITIDINE (SANDOZ) [Suspect]
     Indication: PRODUCT USED FOR UNKNOWN INDICATION
     Dosage: 149 MILLIGRAM
     Route: 058
     Dates: start: 20140414, end: 20140418

REACTIONS (3)
  - Necrotising fasciitis [Unknown]
  - Thrombocytopenia [Unknown]
  - Injection site ulcer [None]
